FAERS Safety Report 17016739 (Version 7)
Quarter: 2021Q4

REPORT INFORMATION
  Report Type: Spontaneous
  Country: None (occurrence: US)
  Receive Date: 20191111
  Receipt Date: 20211109
  Transmission Date: 20220303
  Serious: Yes (Other)
  Sender: FDA-Public Use
  Company Number: US-AKCEA THERAPEUTICS-2019IS001747

PATIENT
  Age: 57 Year
  Sex: Male
  Weight: 65.636 kg

DRUGS (3)
  1. TEGSEDI [Suspect]
     Active Substance: INOTERSEN SODIUM
     Indication: Hereditary neuropathic amyloidosis
     Route: 058
     Dates: start: 20190822, end: 20191021
  2. DEVICE [Suspect]
     Active Substance: DEVICE
  3. TACROLIMUS [Concomitant]
     Active Substance: TACROLIMUS
     Route: 065
     Dates: start: 20130813

REACTIONS (10)
  - Hepatitis [Unknown]
  - Drug-induced liver injury [Unknown]
  - Alanine aminotransferase increased [Recovered/Resolved]
  - Liver transplant rejection [Recovered/Resolved]
  - Full blood count increased [Unknown]
  - Blood alkaline phosphatase increased [Recovered/Resolved]
  - Blood pressure increased [Unknown]
  - Biliary dilatation [Unknown]
  - Platelet count decreased [Unknown]
  - Aspartate aminotransferase increased [Recovered/Resolved]

NARRATIVE: CASE EVENT DATE: 20191001
